FAERS Safety Report 6666927-5 (Version None)
Quarter: 2010Q2

REPORT INFORMATION
  Report Type: 
  Country: None (occurrence: None)
  Receive Date: 20100405
  Receipt Date: 20100324
  Transmission Date: 20101027
  Serious: Yes (Other)
  Sender: FDA-Public Use
  Company Number: PHHY2010BR19169

PATIENT
  Age: 74 Year
  Sex: Female

DRUGS (2)
  1. DIOVAN [Suspect]
     Indication: HYPERTENSION
     Dosage: 1 DF, QD
     Route: 048
     Dates: start: 20100309, end: 20100323
  2. CALCIUM PHOSPHATE W/COLECALCIFEROL [Concomitant]
     Indication: BLOOD CALCIUM DECREASED
     Dosage: 1 DF, PER DAY
     Route: 048
     Dates: start: 20080101

REACTIONS (4)
  - BLOOD PRESSURE INCREASED [None]
  - HEADACHE [None]
  - HIP DEFORMITY [None]
  - NERVOUSNESS [None]
